FAERS Safety Report 7751039-X (Version None)
Quarter: 2011Q3

REPORT INFORMATION
  Report Type: 
  Country: None (occurrence: None)
  Receive Date: 20110914
  Receipt Date: 20110912
  Transmission Date: 20111222
  Serious: Yes (Life-Threatening, Hospitalization)
  Sender: FDA-Public Use
  Company Number: US-CEPHALON-2011003300

PATIENT
  Sex: Male
  Weight: 111 kg

DRUGS (16)
  1. DIPHENHYDRAMINE HCL [Concomitant]
     Dates: start: 20110526
  2. SINEMET [Concomitant]
     Dates: start: 20100610
  3. ONDANSETRON [Concomitant]
     Dates: start: 20110526
  4. SELEGILINE [Concomitant]
     Dates: start: 20110128
  5. HYDROCHLOROTHIAZIDE [Concomitant]
     Dates: start: 20090401
  6. LOVAZA [Concomitant]
     Indication: PROPHYLAXIS
  7. RITUXAN [Suspect]
     Indication: MANTLE CELL LYMPHOMA
     Route: 042
     Dates: start: 20110526
  8. POTASSIUM [Concomitant]
     Dates: start: 20090401
  9. TREANDA [Suspect]
     Indication: MANTLE CELL LYMPHOMA
     Route: 042
     Dates: start: 20110526
  10. ASPIRIN [Concomitant]
     Dates: start: 20090401
  11. NEULASTA [Concomitant]
     Dates: start: 20110528, end: 20110528
  12. ACETAMINOPHEN [Concomitant]
     Dates: start: 20110526
  13. ALLOPURINOL [Concomitant]
     Indication: PROPHYLAXIS
     Dates: start: 20110520, end: 20110603
  14. MIRAPEX [Concomitant]
     Dates: start: 20110204
  15. METOPROLOL [Concomitant]
     Indication: HYPERTENSION
     Dates: start: 20090101
  16. DEXAMETHASONE [Concomitant]
     Dates: start: 20110526

REACTIONS (4)
  - HYPOTENSION [None]
  - SEPSIS [None]
  - RENAL TUBULAR NECROSIS [None]
  - RENAL FAILURE ACUTE [None]
